FAERS Safety Report 7575583-3 (Version None)
Quarter: 2011Q2

REPORT INFORMATION
  Report Type: 
  Country: None (occurrence: None)
  Receive Date: 20110627
  Receipt Date: 20110617
  Transmission Date: 20111010
  Serious: Yes (Other)
  Sender: FDA-Public Use
  Company Number: PHHY2011IT54224

PATIENT
  Age: 12 Year
  Sex: Female

DRUGS (4)
  1. DOXORUBICIN HCL [Suspect]
     Indication: BONE SARCOMA
     Dosage: UNK
     Dates: start: 20080601
  2. IFOSFAMIDE [Suspect]
     Indication: BONE SARCOMA
  3. METHOTREXATE [Suspect]
     Indication: BONE SARCOMA
     Dosage: UNK
     Dates: start: 20080601
  4. CISPLATIN [Suspect]
     Indication: BONE SARCOMA
     Dosage: UNK
     Dates: start: 20080601

REACTIONS (2)
  - TIBIA FRACTURE [None]
  - BONE PAIN [None]
